FAERS Safety Report 18986378 (Version 1)
Quarter: 2021Q1

REPORT INFORMATION
  Report Type: Report from Study
  Country: CN (occurrence: CN)
  Receive Date: 20210309
  Receipt Date: 20210309
  Transmission Date: 20210420
  Serious: Yes (Hospitalization)
  Sender: FDA-Public Use
  Company Number: CN-PFIZER INC-2021240828

PATIENT
  Age: 73 Year
  Sex: Male
  Weight: 74.5 kg

DRUGS (6)
  1. PACLITAXEL. [Suspect]
     Active Substance: PACLITAXEL
     Dosage: 200 MG/M2, Q3 WEEKS X4.CYCLES
     Route: 042
     Dates: start: 20210107, end: 20210107
  2. CARBOPLATIN. [Suspect]
     Active Substance: CARBOPLATIN
     Dosage: AUC 6, Q3 WEEKS X 4 CYCLES
     Route: 042
     Dates: start: 20210107, end: 20210107
  3. BLINDED THERAPY [Suspect]
     Active Substance: INVESTIGATIONAL PRODUCT
     Indication: NON-SMALL CELL LUNG CANCER METASTATIC
     Dosage: UNK, EVERY 3 WEEKS, INTRAVENOUS INFUSION
     Route: 042
     Dates: start: 20201216, end: 20201216
  4. BLINDED THERAPY [Suspect]
     Active Substance: INVESTIGATIONAL PRODUCT
     Dosage: UNK, EVERY 3 WEEKS, INTRAVENOUS INFUSION
     Route: 042
     Dates: start: 20210107, end: 20210107
  5. CARBOPLATIN. [Suspect]
     Active Substance: CARBOPLATIN
     Indication: NON-SMALL CELL LUNG CANCER METASTATIC
     Dosage: AUC 6, Q3 WEEKS X 4 CYCLES
     Route: 042
     Dates: start: 20201216, end: 20201216
  6. PACLITAXEL. [Suspect]
     Active Substance: PACLITAXEL
     Indication: NON-SMALL CELL LUNG CANCER METASTATIC
     Dosage: 200 MG/M2, Q3 WEEKS X4 CYCLES
     Route: 042
     Dates: start: 20201216, end: 20201216

REACTIONS (3)
  - Hyperkalaemia [Recovered/Resolved]
  - Syncope [Recovering/Resolving]
  - Pneumonia [Recovered/Resolved]

NARRATIVE: CASE EVENT DATE: 20210116
